FAERS Safety Report 14663718 (Version 1)
Quarter: 2018Q1

REPORT INFORMATION
  Report Type: Report from Study
  Country: DO (occurrence: DO)
  Receive Date: 20180321
  Receipt Date: 20180321
  Transmission Date: 20180509
  Serious: Yes (Other)
  Sender: FDA-Public Use
  Company Number: PHHY2017DO120901

PATIENT
  Age: 46 Year
  Sex: Female

DRUGS (8)
  1. SCAPHO [Suspect]
     Active Substance: SECUKINUMAB
     Dosage: UNK
     Route: 065
     Dates: start: 20171102
  2. SCAPHO [Suspect]
     Active Substance: SECUKINUMAB
     Dosage: UNK
     Route: 065
     Dates: start: 20180104
  3. SCAPHO [Suspect]
     Active Substance: SECUKINUMAB
     Indication: PRODUCT USED FOR UNKNOWN INDICATION
     Dosage: 150 MG, UNK
     Route: 065
  4. SCAPHO [Suspect]
     Active Substance: SECUKINUMAB
     Dosage: UNK
     Route: 065
     Dates: start: 20170912
  5. SCAPHO [Suspect]
     Active Substance: SECUKINUMAB
     Dosage: UNK
     Route: 065
     Dates: start: 20171004
  6. SCAPHO [Suspect]
     Active Substance: SECUKINUMAB
     Dosage: UNK
     Route: 065
     Dates: start: 20180210
  7. SCAPHO [Suspect]
     Active Substance: SECUKINUMAB
     Dosage: 150 MG, QMO
     Route: 065
     Dates: start: 20170809
  8. SCAPHO [Suspect]
     Active Substance: SECUKINUMAB
     Dosage: UNK
     Route: 065
     Dates: start: 20180305, end: 20180305

REACTIONS (26)
  - Blood glucose decreased [Unknown]
  - Glaucoma [Unknown]
  - Condition aggravated [Unknown]
  - Gait disturbance [Unknown]
  - High density lipoprotein decreased [Unknown]
  - Hyperaesthesia [Unknown]
  - Skin lesion [Unknown]
  - Neck pain [Unknown]
  - Hyperhidrosis [Unknown]
  - Underweight [Unknown]
  - Oedema peripheral [Unknown]
  - Diarrhoea [Unknown]
  - Meniscus injury [Unknown]
  - Skin exfoliation [Unknown]
  - Hypersensitivity [Recovering/Resolving]
  - Arthralgia [Unknown]
  - Lower limb fracture [Unknown]
  - Dizziness [Unknown]
  - Rhinitis [Recovering/Resolving]
  - Stress [Unknown]
  - Erythema [Unknown]
  - Fatigue [Unknown]
  - Drug ineffective [Unknown]
  - Limb injury [Unknown]
  - Pain [Not Recovered/Not Resolved]
  - Hyperkeratosis [Unknown]
